FAERS Safety Report 6250781-X (Version None)
Quarter: 2009Q2

REPORT INFORMATION
  Report Type: 
  Country: None (occurrence: None)
  Receive Date: 20090630
  Receipt Date: 20081106
  Transmission Date: 20091009
  Serious: No
  Sender: FDA-Public Use
  Company Number: US-ABBOTT-08P-163-0486057-00

PATIENT
  Sex: Female

DRUGS (2)
  1. ZEMPLAR [Suspect]
     Indication: HYPERPARATHYROIDISM
     Dosage: 1 MCG IN AM AND 2 MCG IN PM
     Dates: start: 20081002, end: 20081031
  2. ZEMPLAR [Suspect]
     Dosage: DAILY
     Dates: start: 20080801, end: 20081002

REACTIONS (1)
  - DIZZINESS [None]
